FAERS Safety Report 16470110 (Version 1)
Quarter: 2019Q2

REPORT INFORMATION
  Report Type: Spontaneous
  Country: US (occurrence: US)
  Receive Date: 20190624
  Receipt Date: 20190624
  Transmission Date: 20190711
  Serious: Yes (Death)
  Sender: FDA-Public Use
  Company Number: US-RISING PHARMACEUTICALS, INC.-2019RIS00323

PATIENT
  Age: 25 Year
  Sex: Female

DRUGS (3)
  1. FLUOXETINE [Suspect]
     Active Substance: FLUOXETINE HYDROCHLORIDE
     Route: 065
  2. 251-NBOME [Suspect]
     Active Substance: PHENETHYLAMINE
  3. LITHIUM CARBONATE. [Suspect]
     Active Substance: LITHIUM CARBONATE
     Route: 065

REACTIONS (3)
  - Serotonin syndrome [Fatal]
  - Drug interaction [Fatal]
  - Cardio-respiratory arrest [Fatal]
